FAERS Safety Report 9298262 (Version 1)
Quarter: 2013Q1

REPORT INFORMATION
  Report Type: Spontaneous
  Country: US (occurrence: None)
  Receive Date: 20121227
  Receipt Date: 20121227
  Transmission Date: 20140127
  Serious: No
  Sender: FDA-Public Use
  Company Number: PHEH2012US014962

PATIENT
  Age: 6 Year
  Sex: Female

DRUGS (4)
  1. AFINITOR [Suspect]
     Indication: TUBEROUS SCLEROSIS
     Route: 048
     Dates: start: 20110222
  2. TRILEPTAL (OXCARBAZEPINE) [Concomitant]
  3. DIASTAT (DIAZEPAM) [Concomitant]
  4. LAMICTAL (LAMOTRIGINE) [Concomitant]

REACTIONS (6)
  - Anger [None]
  - Headache [None]
  - Aggression [None]
  - Fatigue [None]
  - Stomatitis [None]
  - Cough [None]
